FAERS Safety Report 20872055 (Version 1)
Quarter: 2022Q2

REPORT INFORMATION
  Report Type: Spontaneous
  Country: FR (occurrence: FR)
  Receive Date: 20220525
  Receipt Date: 20220525
  Transmission Date: 20220721
  Serious: Yes (Hospitalization)
  Sender: FDA-Public Use
  Company Number: None

PATIENT
  Age: 33 Year
  Sex: Male
  Weight: 53 kg

DRUGS (20)
  1. GANCICLOVIR [Suspect]
     Active Substance: GANCICLOVIR
     Indication: Prophylaxis against transplant rejection
     Dosage: 250 MG MORNING AND EVENING
     Route: 065
     Dates: start: 20220122, end: 20220207
  2. AMBISOME [Suspect]
     Active Substance: AMPHOTERICIN B
     Indication: Prophylaxis against transplant rejection
     Dosage: 150 MG, DAILY
     Route: 042
     Dates: start: 20220122, end: 20220216
  3. CELLCEPT [Suspect]
     Active Substance: MYCOPHENOLATE MOFETIL
     Indication: Prophylaxis against transplant rejection
     Dosage: 1 MG MORNING AND EVENING
     Route: 048
     Dates: start: 20220122, end: 20220203
  4. CELLCEPT [Suspect]
     Active Substance: MYCOPHENOLATE MOFETIL
     Indication: Prophylaxis against transplant rejection
     Dosage: 500 MG MORNING AND EVENING
     Route: 048
     Dates: start: 20220203
  5. CYCLOSPORINE [Suspect]
     Active Substance: CYCLOSPORINE
     Indication: Prophylaxis against transplant rejection
     Dosage: 100 MG
     Route: 042
     Dates: start: 20220122, end: 20220203
  6. MEROPENEM [Suspect]
     Active Substance: MEROPENEM
     Indication: Prophylaxis against transplant rejection
     Dosage: 6 G, DAILY
     Route: 042
     Dates: start: 20220122, end: 20220211
  7. METHYLPREDNISOLONE [Suspect]
     Active Substance: METHYLPREDNISOLONE
     Indication: Prophylaxis against transplant rejection
     Dosage: UNK
     Route: 042
     Dates: start: 20220122
  8. METHYLPREDNISOLONE [Suspect]
     Active Substance: METHYLPREDNISOLONE
     Indication: Prophylaxis against transplant rejection
     Dosage: UNK
     Route: 048
     Dates: start: 20220122
  9. TACROLIMUS [Suspect]
     Active Substance: TACROLIMUS
     Indication: Prophylaxis against transplant rejection
     Dosage: 1 MG
     Route: 048
     Dates: start: 20220203
  10. VALGANCICLOVIR HYDROCHLORIDE [Suspect]
     Active Substance: VALGANCICLOVIR HYDROCHLORIDE
     Indication: Prophylaxis against transplant rejection
     Dosage: 450 MG MORNING AND EVENING
     Route: 048
     Dates: start: 20220207
  11. NOREPINEPHRINE [Suspect]
     Active Substance: NOREPINEPHRINE
     Dosage: 4 MG, Q1HR
     Route: 042
     Dates: start: 20220122
  12. MIDAZOLAM [Suspect]
     Active Substance: MIDAZOLAM
     Dosage: UNK
     Route: 048
     Dates: start: 20220122
  13. DEXMEDETOMIDINE HYDROCHLORIDE [Suspect]
     Active Substance: DEXMEDETOMIDINE HYDROCHLORIDE
     Dosage: UNK
     Route: 065
     Dates: start: 20220124
  14. BACTRIM [Suspect]
     Active Substance: SULFAMETHOXAZOLE\TRIMETHOPRIM
     Dosage: UNK, 3/WEEK SULFAMETHOXAZOLE 800 MG/ TRIMETHOPRIM 160 MG
     Route: 048
     Dates: start: 20220204, end: 20220311
  15. DAPTOMYCIN [Suspect]
     Active Substance: DAPTOMYCIN
     Dosage: 500 MG, DAILY
     Route: 042
     Dates: start: 20220204, end: 20220223
  16. MINOCYCLINE HYDROCHLORIDE [Suspect]
     Active Substance: MINOCYCLINE HYDROCHLORIDE
     Dosage: 500 MG, DAILY
     Route: 048
     Dates: start: 20220224, end: 20220311
  17. CIPROFLOXACIN [Suspect]
     Active Substance: CIPROFLOXACIN
     Dosage: 750 MG, BID
     Route: 048
     Dates: start: 20220228, end: 20220311
  18. PANTOPRAZOLE [Suspect]
     Active Substance: PANTOPRAZOLE
     Dosage: 40 MG
     Route: 048
  19. INSULIN NOS [Suspect]
     Active Substance: INSULIN NOS
     Dosage: UNK
     Route: 065
  20. DOLIPRANE [Suspect]
     Active Substance: ACETAMINOPHEN
     Dosage: 1 G, QID
     Route: 048

REACTIONS (2)
  - Hepatic cytolysis [Recovering/Resolving]
  - Cholestasis [Not Recovered/Not Resolved]

NARRATIVE: CASE EVENT DATE: 20220122
